FAERS Safety Report 8065504-1 (Version None)
Quarter: 2011Q4

REPORT INFORMATION
  Report Type: 
  Country: None (occurrence: None)
  Receive Date: 20111221
  Receipt Date: 20110829
  Transmission Date: 20120403
  Serious: Yes (Other)
  Sender: FDA-Public Use
  Company Number: PHHY2011US01230

PATIENT
  Age: 5 Year
  Sex: Female
  Weight: 20.4 kg

DRUGS (5)
  1. OMEPRAZOLE [Concomitant]
  2. MULTIVIT (VITAMINS NOS) [Concomitant]
  3. EXJADE [Suspect]
     Indication: THALASSAEMIA BETA
     Dosage: 375 MG, QD, ORAL
     Route: 048
     Dates: start: 20101229
  4. ALBUTEROL [Concomitant]
  5. KEPPRA [Concomitant]

REACTIONS (12)
  - HEPATIC ENZYME INCREASED [None]
  - SERUM FERRITIN DECREASED [None]
  - ABNORMAL FAECES [None]
  - HEPATITIS [None]
  - SERUM FERRITIN INCREASED [None]
  - FAECES DISCOLOURED [None]
  - AMMONIA INCREASED [None]
  - LIVER DISORDER [None]
  - BLOOD BILIRUBIN INCREASED [None]
  - CONSTIPATION [None]
  - DIARRHOEA [None]
  - DRUG INEFFECTIVE [None]
